FAERS Safety Report 24148523 (Version 1)
Quarter: 2024Q3

REPORT INFORMATION
  Report Type: Spontaneous
  Country: JP (occurrence: None)
  Receive Date: 20240729
  Receipt Date: 20240729
  Transmission Date: 20241016
  Serious: Yes (Death, Other)
  Sender: ASTRAZENECA
  Company Number: 2023A204784

PATIENT
  Age: 54 Year
  Sex: Female

DRUGS (6)
  1. IMFINZI [Suspect]
     Active Substance: DURVALUMAB
     Indication: Non-small cell lung cancer
     Route: 042
     Dates: start: 20230821, end: 20230821
  2. IMJUDO [Suspect]
     Active Substance: TREMELIMUMAB\TREMELIMUMAB-ACTL
     Indication: Non-small cell lung cancer
     Route: 042
     Dates: start: 20230821, end: 20230821
  3. CISPLATIN [Concomitant]
     Active Substance: CISPLATIN
     Indication: Ovarian cancer
     Dates: start: 20230821, end: 20230821
  4. CISPLATIN [Concomitant]
     Active Substance: CISPLATIN
     Indication: Ovarian cancer
     Dates: start: 20231024
  5. GEMCITABINE [Concomitant]
     Active Substance: GEMCITABINE
     Indication: Ovarian cancer
     Dates: start: 20230821, end: 20230821
  6. GEMCITABINE [Concomitant]
     Active Substance: GEMCITABINE
     Indication: Ovarian cancer
     Dates: start: 20231024

REACTIONS (12)
  - Immune-mediated dermatitis [Unknown]
  - Metastases to skin [Unknown]
  - Death [Fatal]
  - Liver disorder [Recovering/Resolving]
  - Decreased appetite [Unknown]
  - Cytopenia [Unknown]
  - Stomatitis [Unknown]
  - Back pain [Unknown]
  - Pruritus [Unknown]
  - Mouth swelling [Unknown]
  - Pigmentation disorder [Unknown]
  - Renal disorder [Unknown]

NARRATIVE: CASE EVENT DATE: 20230101
